FAERS Safety Report 4596102-X (Version None)
Quarter: 2005Q1

REPORT INFORMATION
  Report Type: 
  Country: None (occurrence: None)
  Receive Date: 20050225
  Receipt Date: 20050214
  Transmission Date: 20050727
  Serious: Yes (Other)
  Sender: FDA-Public Use
  Company Number: JP-2005-002374

PATIENT
  Age: 81 Year
  Sex: Male

DRUGS (2)
  1. SOTALOL              (SOTALOL HYDROCHLORIDE) [Suspect]
     Indication: VENTRICULAR TACHYCARDIA
     Dosage: 40 MG, 1X/DAY,ORAL
     Route: 048
     Dates: start: 20030326, end: 20030403
  2. CONIEL                 (BENIDIPINE HYDROCHLORIDE) [Concomitant]

REACTIONS (3)
  - BLOOD CREATININE INCREASED [None]
  - BLOOD UREA INCREASED [None]
  - RENAL IMPAIRMENT [None]
